FAERS Safety Report 16347153 (Version 1)
Quarter: 2019Q2

REPORT INFORMATION
  Report Type: Report from Study
  Country: US (occurrence: US)
  Receive Date: 20190523
  Receipt Date: 20190523
  Transmission Date: 20190711
  Serious: Yes (Hospitalization, Other)
  Sender: FDA-Public Use
  Company Number: US-BRISTOL-MYERS SQUIBB COMPANY-BMS-2019-049310

PATIENT
  Age: 45 Year
  Sex: Male
  Weight: 110.3 kg

DRUGS (2)
  1. NIVOLUMAB [Suspect]
     Active Substance: NIVOLUMAB
     Indication: COLON CANCER
     Dosage: 480 MILLIGRAM, QMO
     Route: 042
     Dates: start: 20190429
  2. METFORMIN HYDROCHLORIDE. [Suspect]
     Active Substance: METFORMIN HYDROCHLORIDE
     Indication: COLON CANCER
     Dosage: 1000 MILLIGRAM, BID
     Route: 048
     Dates: start: 20190412

REACTIONS (1)
  - Rectal obstruction [Unknown]

NARRATIVE: CASE EVENT DATE: 20190510
